FAERS Safety Report 5758892-X (Version None)
Quarter: 2008Q2

REPORT INFORMATION
  Report Type: 
  Country: None (occurrence: None)
  Receive Date: 20080604
  Receipt Date: 20080527
  Transmission Date: 20081010
  Serious: Yes (Other)
  Sender: FDA-Public Use
  Company Number: PHBS2007BR14938

PATIENT
  Sex: Male
  Weight: 94 kg

DRUGS (4)
  1. EXFORGE [Suspect]
     Dosage: VALS 80 / AMLO 5 MG/DAY
     Route: 048
  2. RIVOTRIL [Concomitant]
     Indication: FEELING OF RELAXATION
     Dosage: 0.5 MG, BID
     Route: 048
  3. RIVOTRIL [Concomitant]
     Indication: INSOMNIA
  4. CITTA [Concomitant]
     Indication: ANXIETY
     Dosage: 1 TABLET/DAY
     Route: 048

REACTIONS (5)
  - LOW DENSITY LIPOPROTEIN INCREASED [None]
  - NERVOUSNESS [None]
  - PANIC ATTACK [None]
  - VISUAL ACUITY REDUCED [None]
  - WEIGHT DECREASED [None]
